FAERS Safety Report 8372936-0 (Version None)
Quarter: 2012Q2

REPORT INFORMATION
  Report Type: 
  Country: None (occurrence: None)
  Receive Date: 20120521
  Receipt Date: 20111012
  Transmission Date: 20120825
  Serious: No
  Sender: FDA-Public Use
  Company Number: US-ASTRAZENECA-2011SE69614

PATIENT
  Sex: Male

DRUGS (2)
  1. CALCIUM CARBONATE [Concomitant]
     Dosage: UNKNOWN
  2. PRILOSEC OTC [Suspect]
     Route: 048
     Dates: start: 20111009

REACTIONS (3)
  - DERMATITIS [None]
  - URTICARIA [None]
  - PRURITUS [None]
